FAERS Safety Report 25933309 (Version 3)
Quarter: 2025Q4

REPORT INFORMATION
  Report Type: Spontaneous
  Country: US (occurrence: US)
  Receive Date: 20251017
  Receipt Date: 20251215
  Transmission Date: 20260117
  Serious: No
  Sender: TORRENT PHARMA INC.
  Company Number: US-TORRENT-00014562

PATIENT
  Sex: Female

DRUGS (6)
  1. DAPSONE [Suspect]
     Active Substance: DAPSONE
     Indication: Product used for unknown indication
     Dosage: FOR TOPICAL USE ONLY, APPLY ONCE DAILY, RX ONLY 60G
     Route: 061
     Dates: start: 20251004, end: 20251006
  2. ADVAIR HFA [Concomitant]
     Active Substance: FLUTICASONE PROPIONATE\SALMETEROL XINAFOATE
     Indication: Product used for unknown indication
     Dosage: 250MG QD
     Route: 065
  3. PROMETHAZINE [Concomitant]
     Active Substance: PROMETHAZINE HYDROCHLORIDE
     Indication: Product used for unknown indication
     Dosage: QHS
     Route: 065
  4. SINGULAIR [Concomitant]
     Active Substance: MONTELUKAST SODIUM
     Indication: Product used for unknown indication
     Dosage: 10MG QD
     Route: 065
  5. SPIRONOLACTONE [Concomitant]
     Active Substance: SPIRONOLACTONE
     Indication: Product used for unknown indication
     Dosage: 50MG BID
     Route: 065
  6. ZYRTEC [Concomitant]
     Active Substance: CETIRIZINE HYDROCHLORIDE
     Indication: Product used for unknown indication
     Dosage: 10MG QD
     Route: 065

REACTIONS (1)
  - Skin irritation [Unknown]
